FAERS Safety Report 10061464 (Version 1)
Quarter: 2014Q2

REPORT INFORMATION
  Report Type: Spontaneous
  Country: JP (occurrence: JP)
  Receive Date: 20140407
  Receipt Date: 20140407
  Transmission Date: 20141212
  Serious: Yes (Other)
  Sender: FDA-Public Use
  Company Number: JP-JNJFOC-20140401663

PATIENT
  Sex: Male

DRUGS (4)
  1. XARELTO [Suspect]
     Indication: THROMBOSIS PROPHYLAXIS
     Route: 048
     Dates: end: 201403
  2. XARELTO [Suspect]
     Indication: CEREBROVASCULAR ACCIDENT PROPHYLAXIS
     Route: 048
     Dates: end: 201403
  3. XARELTO [Suspect]
     Indication: EMBOLISM
     Route: 048
     Dates: end: 201403
  4. XARELTO [Suspect]
     Indication: ISCHAEMIC STROKE
     Route: 048
     Dates: end: 201403

REACTIONS (1)
  - Interstitial lung disease [Unknown]
